FAERS Safety Report 4530373-0 (Version None)
Quarter: 2004Q4

REPORT INFORMATION
  Report Type: 
  Country: None (occurrence: None)
  Receive Date: 20041216
  Receipt Date: 20041216
  Transmission Date: 20050328
  Serious: Yes (Other)
  Sender: FDA-Public Use
  Company Number: None

PATIENT
  Age: 37 Year
  Sex: Female
  Weight: 86.1834 kg

DRUGS (2)
  1. CARISOPRODOL [Suspect]
     Dosage: TWICE DAILY ONE PILL
     Dates: start: 20040501
  2. CARISOPRODOL [Suspect]
     Dosage: TWICE DAILY ONE PILL
     Dates: start: 20041002

REACTIONS (1)
  - AMNESIA [None]
